FAERS Safety Report 9779852 (Version 1)
Quarter: 2013Q4

REPORT INFORMATION
  Report Type: Spontaneous
  Country: PT (occurrence: PT)
  Receive Date: 20131223
  Receipt Date: 20131223
  Transmission Date: 20140711
  Serious: Yes (Other)
  Sender: FDA-Public Use
  Company Number: PHHY2013PT146172

PATIENT
  Age: 39 Year
  Sex: Female

DRUGS (6)
  1. MYCOPHENOLIC ACID [Suspect]
     Indication: IMMUNOSUPPRESSION
  2. TACROLIMUS [Suspect]
     Indication: IMMUNOSUPPRESSION
  3. PREDNISONE [Suspect]
     Indication: IMMUNOSUPPRESSION
  4. RIFAMPICIN [Suspect]
     Indication: TUBERCULOSIS GASTROINTESTINAL
  5. ISONIAZID [Suspect]
     Indication: TUBERCULOSIS GASTROINTESTINAL
  6. PYRAZINAMIDE [Suspect]
     Indication: TUBERCULOSIS GASTROINTESTINAL

REACTIONS (3)
  - Kidney transplant rejection [Unknown]
  - Renal transplant failure [Unknown]
  - Hepatotoxicity [Unknown]
